FAERS Safety Report 7459376-3 (Version None)
Quarter: 2011Q2

REPORT INFORMATION
  Report Type: 
  Country: None (occurrence: None)
  Receive Date: 20110505
  Receipt Date: 20110429
  Transmission Date: 20111010
  Serious: No
  Sender: FDA-Public Use
  Company Number: US-PFIZER INC-2011093011

PATIENT
  Sex: Male

DRUGS (4)
  1. GABAPENTIN [Suspect]
     Dosage: 4-6 TABLET DAILY
  2. CYMBALTA [Suspect]
     Dosage: UNK
  3. LYRICA [Suspect]
     Indication: NEUROPATHY PERIPHERAL
     Dosage: UNK
  4. BACLOFEN [Suspect]

REACTIONS (2)
  - WEIGHT INCREASED [None]
  - DRUG INEFFECTIVE [None]
